FAERS Safety Report 8983233 (Version 1)
Quarter: 2012Q4

REPORT INFORMATION
  Report Type: 
  Country: CA (occurrence: CA)
  Receive Date: 20121224
  Receipt Date: 20121224
  Transmission Date: 20130627
  Serious: Yes (Other)
  Sender: FDA-Public Use
  Company Number: PHHY2012CA118016

PATIENT
  Sex: Female

DRUGS (1)
  1. ZOMETA [Suspect]
     Indication: BREAST CANCER METASTATIC
     Dosage: 4 mg, once a month
     Route: 042
     Dates: start: 20040901

REACTIONS (3)
  - Gastrointestinal disorder [Unknown]
  - Sinus disorder [Unknown]
  - Sinusitis [Unknown]
